FAERS Safety Report 20469261 (Version 1)
Quarter: 2022Q1

REPORT INFORMATION
  Report Type: Spontaneous
  Country: US (occurrence: None)
  Receive Date: 20220212
  Receipt Date: 20220212
  Transmission Date: 20220423
  Serious: No
  Sender: FDA-Public Use
  Company Number: None

PATIENT
  Age: 44 Year
  Sex: Female
  Weight: 103.5 kg

DRUGS (6)
  1. VAGISTAT [Suspect]
     Active Substance: TIOCONAZOLE
     Indication: Fungal infection
     Dosage: OTHER STRENGTH : 1 DAY;?
     Dates: start: 20220210, end: 20220210
  2. PROZAC [Concomitant]
  3. WELLBUTRIN [Concomitant]
  4. VALSAARTAIN [Concomitant]
  5. HYDROCHLORATHIAZIME [Concomitant]
  6. ATORVASTAIN [Concomitant]

REACTIONS (2)
  - Tissue irritation [None]
  - Inflammation [None]

NARRATIVE: CASE EVENT DATE: 20220212
